FAERS Safety Report 11907618 (Version 2)
Quarter: 2016Q4

REPORT INFORMATION
  Report Type: Spontaneous
  Country: US (occurrence: US)
  Receive Date: 20160111
  Receipt Date: 20161219
  Transmission Date: 20170206
  Serious: No
  Sender: FDA-Public Use
  Company Number: US-ENDO PHARMACEUTICALS INC.-2015-000223

PATIENT
  Age: 61 Year
  Sex: Female
  Weight: 49.94 kg

DRUGS (2)
  1. PERCOCET [Suspect]
     Active Substance: ACETAMINOPHEN\OXYCODONE HYDROCHLORIDE
     Indication: BACK DISORDER
     Dosage: 1 TO 1.5 TABLETS AS NEEDED
     Route: 065
  2. PERCOCET [Suspect]
     Active Substance: ACETAMINOPHEN\OXYCODONE HYDROCHLORIDE
     Indication: BACK PAIN

REACTIONS (5)
  - Pain in extremity [Not Recovered/Not Resolved]
  - Product quality issue [Unknown]
  - Pain [Recovering/Resolving]
  - Vomiting [Unknown]
  - Fatigue [Not Recovered/Not Resolved]

NARRATIVE: CASE EVENT DATE: 2016
